FAERS Safety Report 5319895-2 (Version None)
Quarter: 2007Q2

REPORT INFORMATION
  Report Type: 
  Country: None (occurrence: None)
  Receive Date: 20070503
  Receipt Date: 20070418
  Transmission Date: 20071010
  Serious: Yes (Death, Hospitalization)
  Sender: FDA-Public Use
  Company Number: 2007US000880

PATIENT
  Age: 57 Year
  Sex: Female

DRUGS (6)
  1. PROGRAF [Suspect]
     Indication: LUNG TRANSPLANT REJECTION
     Dates: start: 20040301
  2. PREDNISONE TAB [Suspect]
     Indication: LUNG TRANSPLANT REJECTION
  3. MYCOPHENOLATE MOFETIL [Suspect]
     Indication: LUNG TRANSPLANT REJECTION
     Dates: start: 20040301
  4. TRIMETOPRIM + SULFAMETOXAZOL (SULFAMETHOXAZOLE, TRIMETHOPRIM) [Concomitant]
  5. ITRACONAZOLE [Concomitant]
  6. VALGANCICLOVIR HCL [Concomitant]

REACTIONS (13)
  - ABSCESS [None]
  - BACTERAEMIA [None]
  - BREAST SWELLING [None]
  - CEREBRAL HAEMORRHAGE [None]
  - ENTEROCOCCAL INFECTION [None]
  - ERYTHEMA [None]
  - EYELID PTOSIS [None]
  - FUNGAEMIA [None]
  - GAZE PALSY [None]
  - LUNG TRANSPLANT REJECTION [None]
  - MULTI-ORGAN FAILURE [None]
  - SCEDOSPORIUM INFECTION [None]
  - SKIN NODULE [None]
